FAERS Safety Report 7112475-8 (Version None)
Quarter: 2010Q4

REPORT INFORMATION
  Report Type: 
  Country: None (occurrence: None)
  Receive Date: 20101119
  Receipt Date: 20100903
  Transmission Date: 20110411
  Serious: Yes (Other)
  Sender: FDA-Public Use
  Company Number: US-BAYER-201010767NA

PATIENT
  Age: 45 Year
  Sex: Female
  Weight: 84 kg

DRUGS (15)
  1. YASMIN [Suspect]
     Indication: MENORRHAGIA
     Route: 048
     Dates: start: 20070801, end: 20071001
  2. LEVOTHYROXINE SODIUM [Concomitant]
     Dates: start: 20030101
  3. LEVOTHYROXINE SODIUM [Concomitant]
     Dates: start: 20070201
  4. LEVOTHYROXINE SODIUM [Concomitant]
     Dates: start: 20070801
  5. LEVOTHYROXINE SODIUM [Concomitant]
     Dates: start: 20070501
  6. KETOROLAC TROMETHAMINE [Concomitant]
     Dates: start: 20071001
  7. PREDNISONE [Concomitant]
     Dates: start: 20070601
  8. MEDROXYPR [Concomitant]
     Dates: start: 20070801
  9. WARFARIN SODIUM [Concomitant]
     Dates: start: 20071001
  10. FLUOCINONIDE [Concomitant]
  11. ONDANSETRON [Concomitant]
     Route: 042
     Dates: start: 20071001
  12. KETOROLAC TROMETHAMINE [Concomitant]
     Route: 042
     Dates: start: 20071001
  13. LOVENOX [Concomitant]
     Dates: start: 20071001
  14. DOCUSATE [Concomitant]
     Dates: start: 20071001
  15. ACETAMIN [Concomitant]
     Dates: start: 20071001

REACTIONS (11)
  - BACK PAIN [None]
  - DEEP VEIN THROMBOSIS [None]
  - HYPOAESTHESIA [None]
  - NAUSEA [None]
  - OEDEMA PERIPHERAL [None]
  - PAIN [None]
  - PULMONARY EMBOLISM [None]
  - PULSE ABSENT [None]
  - SCIATICA [None]
  - SKIN DISCOLOURATION [None]
  - THROMBOSIS [None]
